APPROVED DRUG PRODUCT: LOPERAMIDE HYDROCHLORIDE AND SIMETHICONE
Active Ingredient: LOPERAMIDE HYDROCHLORIDE; SIMETHICONE
Strength: 2MG;125MG
Dosage Form/Route: TABLET;ORAL
Application: A215981 | Product #001
Applicant: GRANULES INDIA LTD
Approved: Aug 29, 2022 | RLD: No | RS: No | Type: DISCN